FAERS Safety Report 13002961 (Version 1)
Quarter: 2016Q4

REPORT INFORMATION
  Report Type: Spontaneous
  Country: US (occurrence: US)
  Receive Date: 20161205
  Receipt Date: 20161205
  Transmission Date: 20170207
  Serious: Yes (Hospitalization)
  Sender: FDA-Public Use
  Company Number: None

PATIENT
  Age: 84 Year
  Sex: Male
  Weight: 93 kg

DRUGS (11)
  1. PANTOPRAZOLE [Concomitant]
     Active Substance: PANTOPRAZOLE SODIUM
  2. TRIAMCINOLONE [Concomitant]
     Active Substance: TRIAMCINOLONE
  3. DAPTOMYCIN. [Suspect]
     Active Substance: DAPTOMYCIN
     Indication: ARTHRITIS INFECTIVE
     Route: 040
  4. AMOXICILLIN. [Concomitant]
     Active Substance: AMOXICILLIN
  5. CEFTRIAXONE CLOBETASOL [Concomitant]
  6. ELIQUIS FERROUS GLUCONATE [Concomitant]
  7. KETOCONAZOLE. [Concomitant]
     Active Substance: KETOCONAZOLE
  8. TRAMADOL. [Concomitant]
     Active Substance: TRAMADOL
  9. HEPARIN FLUSH [Concomitant]
     Active Substance: HEPARIN SODIUM
  10. LOSARTAN. [Concomitant]
     Active Substance: LOSARTAN
  11. PROBIOTIC [Concomitant]
     Active Substance: PROBIOTICS NOS

REACTIONS (1)
  - Eosinophilic pneumonia [None]

NARRATIVE: CASE EVENT DATE: 20161111
